FAERS Safety Report 8525466-7 (Version None)
Quarter: 2012Q3

REPORT INFORMATION
  Report Type: 
  Country: None (occurrence: None)
  Receive Date: 20120720
  Receipt Date: 20120703
  Transmission Date: 20120928
  Serious: Yes (Hospitalization, Disabling, Other)
  Sender: FDA-Public Use
  Company Number: US-009507513-1203USA03344

PATIENT

DRUGS (3)
  1. FOSAMAX [Suspect]
     Indication: OSTEOPENIA
     Dosage: 5 MG, QD
     Route: 048
     Dates: start: 19971120, end: 20001201
  2. FOSAMAX [Suspect]
     Indication: OSTEOPOROSIS
     Dosage: 70 MG, QW
     Route: 048
     Dates: start: 20021201, end: 20080201
  3. FOSAMAX PLUS D [Suspect]
     Route: 048

REACTIONS (34)
  - PAIN [None]
  - URINARY TRACT INFECTION [None]
  - BRONCHIECTASIS [None]
  - PARONYCHIA [None]
  - MUSCULOSKELETAL DISCOMFORT [None]
  - DRUG INEFFECTIVE [None]
  - GASTRIC ULCER HAEMORRHAGE [None]
  - FALL [None]
  - STRESS FRACTURE [None]
  - ANAEMIA POSTOPERATIVE [None]
  - DIVERTICULUM [None]
  - PAIN IN EXTREMITY [None]
  - BONE DENSITY DECREASED [None]
  - PEPTIC ULCER [None]
  - MIGRAINE [None]
  - HEPATIC CYST [None]
  - OSTEOPOROSIS [None]
  - TONSILLAR DISORDER [None]
  - HEADACHE [None]
  - ASTHENIA [None]
  - PNEUMONITIS [None]
  - PULMONARY GRANULOMA [None]
  - LUNG DISORDER [None]
  - FEMUR FRACTURE [None]
  - HYPERTENSION [None]
  - DEPRESSION [None]
  - ALLERGY TO ANIMAL [None]
  - PULMONARY FIBROSIS [None]
  - DYSPEPSIA [None]
  - POSTMENOPAUSAL HAEMORRHAGE [None]
  - HOT FLUSH [None]
  - IMPAIRED HEALING [None]
  - POLLAKIURIA [None]
  - CONTUSION [None]
